FAERS Safety Report 10255828 (Version 1)
Quarter: 2014Q2

REPORT INFORMATION
  Report Type: Spontaneous
  Country: US (occurrence: US)
  Receive Date: 20140624
  Receipt Date: 20140624
  Transmission Date: 20141212
  Serious: No
  Sender: FDA-Public Use
  Company Number: US-ZOGENIX, INC.-2012ZX000003

PATIENT
  Age: 22 Year
  Sex: Male
  Weight: 90.8 kg

DRUGS (2)
  1. SUMAVEL DOSEPRO [Suspect]
     Indication: MIGRAINE
  2. ZONISAMIDE [Concomitant]
     Indication: MIGRAINE

REACTIONS (3)
  - Abdominal pain upper [Recovered/Resolved]
  - Drug effect incomplete [Recovered/Resolved]
  - Vomiting [Recovered/Resolved]
